FAERS Safety Report 8426267-0 (Version None)
Quarter: 2012Q2

REPORT INFORMATION
  Report Type: 
  Country: None (occurrence: None)
  Receive Date: 20120611
  Receipt Date: 20120530
  Transmission Date: 20120825
  Serious: Yes (Disabling, Other)
  Sender: FDA-Public Use
  Company Number: AU-SANOFI-AVENTIS-2012SA038314

PATIENT
  Age: 42 Year
  Sex: Male

DRUGS (4)
  1. LANTUS [Suspect]
     Route: 065
  2. LANTUS [Suspect]
     Dosage: DOSE: 15 UNITSIN THE MORNING AND 30 UNITS AT NIGHT.
     Route: 065
     Dates: start: 20120101
  3. NOVORAPID [Concomitant]
     Dates: start: 20060101
  4. LANTUS [Suspect]
     Dosage: DOSE:47 UNIT(S)
     Route: 065
     Dates: start: 20080101

REACTIONS (8)
  - IMPAIRED WORK ABILITY [None]
  - HAEMORRHAGE [None]
  - RETINAL HAEMORRHAGE [None]
  - RETINOPATHY [None]
  - DRUG ADMINISTRATION ERROR [None]
  - VISUAL FIELD DEFECT [None]
  - BLOOD GLUCOSE INCREASED [None]
  - DRUG INEFFECTIVE [None]
